FAERS Safety Report 8236627-9 (Version None)
Quarter: 2012Q1

REPORT INFORMATION
  Report Type: 
  Country: None (occurrence: None)
  Receive Date: 20120326
  Receipt Date: 20120326
  Transmission Date: 20120608
  Serious: No
  Sender: FDA-Public Use
  Company Number: None

PATIENT
  Sex: Female

DRUGS (2)
  1. LEVOFLOXACIN [Suspect]
     Indication: BRONCHITIS
     Dosage: 1 DAILY 10 DAYS ORAL
     Route: 048
     Dates: start: 20120213
  2. PREDNISONE [Suspect]
     Indication: NASOPHARYNGITIS
     Dosage: 3-2-1 3 DAYS EA ORAL
     Route: 048
     Dates: start: 20120213

REACTIONS (3)
  - TENDONITIS [None]
  - ABASIA [None]
  - MUSCLE SPASMS [None]
